FAERS Safety Report 25895681 (Version 1)
Quarter: 2025Q4

REPORT INFORMATION
  Report Type: Spontaneous
  Country: EU (occurrence: EU)
  Receive Date: 20251008
  Receipt Date: 20251008
  Transmission Date: 20260118
  Serious: Yes (Hospitalization, Other)
  Sender: Amivas
  Company Number: None

PATIENT
  Age: 82 Year
  Sex: Female

DRUGS (2)
  1. ARTESUNATE [Suspect]
     Active Substance: ARTESUNATE
     Indication: Cerebral malaria
     Dosage: H0, H12 PUIS H24
     Route: 042
     Dates: start: 20250907, end: 20250908
  2. ARTENIMOL\PIPERAQUINE PHOSPHATE [Suspect]
     Active Substance: ARTENIMOL\PIPERAQUINE PHOSPHATE
     Indication: Cerebral malaria
     Route: 048
     Dates: start: 20250909, end: 20250911

REACTIONS (2)
  - Agranulocytosis [Recovered/Resolved]
  - Coombs positive haemolytic anaemia [Recovering/Resolving]

NARRATIVE: CASE EVENT DATE: 20250918
